FAERS Safety Report 5775878-X (Version None)
Quarter: 2008Q2

REPORT INFORMATION
  Report Type: 
  Country: None (occurrence: None)
  Receive Date: 20080617
  Receipt Date: 20080603
  Transmission Date: 20081010
  Serious: Yes (Life-Threatening, Hospitalization, Other)
  Sender: FDA-Public Use
  Company Number: CH-ELI_LILLY_AND_COMPANY-CH200805002762

PATIENT
  Age: 50 Year
  Sex: Male

DRUGS (12)
  1. CYMBALTA [Suspect]
     Indication: DEPRESSION
     Dosage: UNK UNK, DAILY (1/D)
     Route: 048
     Dates: start: 20070808
  2. CYMBALTA [Suspect]
     Dosage: 120 MG, DAILY (1/D)
     Route: 048
     Dates: start: 20070821, end: 20071001
  3. CITALOPRAM HYDROBROMIDE [Concomitant]
     Dosage: UNK UNK, DAILY (1/D)
     Route: 048
  4. CITALOPRAM HYDROBROMIDE [Concomitant]
     Dosage: UNK, UNKNOWN
     Route: 065
  5. CITALOPRAM HYDROBROMIDE [Concomitant]
     Dosage: UNK, UNKNOWN
     Route: 065
     Dates: start: 20070810
  6. SEROQUEL [Concomitant]
     Dosage: 7000 MG,AT ONCE
     Dates: start: 20071001, end: 20071001
  7. SEROQUEL [Concomitant]
     Dosage: UNK UNK, DAILY (1/D)
     Route: 048
     Dates: start: 20070705
  8. SEROQUEL [Concomitant]
     Dosage: 325 MG, DAILY (1/D)
     Route: 048
     Dates: start: 20070829, end: 20070930
  9. SEROQUEL [Concomitant]
     Dosage: UNK, UNKNOWN
     Route: 065
     Dates: start: 20071001
  10. TRIMIN [Concomitant]
     Dosage: 50 MG, DAILY (1/D)
     Route: 048
     Dates: start: 20070101, end: 20071001
  11. TRIMIN [Concomitant]
     Dosage: UNK, UNKNOWN
     Route: 065
     Dates: start: 20071001, end: 20071001
  12. LORAZEPAM [Concomitant]
     Dosage: 16 MG, AT ONCE
     Route: 065
     Dates: start: 20071001

REACTIONS (5)
  - AGITATION [None]
  - ASPIRATION [None]
  - DEPRESSION [None]
  - FEELING ABNORMAL [None]
  - SUICIDE ATTEMPT [None]
